FAERS Safety Report 15314873 (Version 6)
Quarter: 2021Q1

REPORT INFORMATION
  Report Type: Spontaneous
  Country: DE (occurrence: DE)
  Receive Date: 20180824
  Receipt Date: 20210212
  Transmission Date: 20210419
  Serious: Yes (Other)
  Sender: FDA-Public Use
  Company Number: DE-AUROBINDO-AUR-APL-2018-043210

PATIENT
  Age: 53 Year
  Sex: Female

DRUGS (15)
  1. VALSACOR [Suspect]
     Active Substance: VALSARTAN
     Indication: THYROID DISORDER
     Dosage: 160 MILLIGRAM
     Route: 065
  2. PALEXIA [Concomitant]
     Active Substance: TAPENTADOL HYDROCHLORIDE
     Indication: PRODUCT USED FOR UNKNOWN INDICATION
     Dosage: 150 MILLIGRAM
     Route: 065
  3. ROACTEMRA [Suspect]
     Active Substance: TOCILIZUMAB
     Dosage: 162 MILLIGRAM, EVERY WEEK
     Route: 058
     Dates: start: 20180928
  4. ROACTEMRA [Suspect]
     Active Substance: TOCILIZUMAB
     Dosage: UNK
     Route: 065
  5. CANDECOR [Concomitant]
     Active Substance: CANDESARTAN CILEXETIL
     Indication: PRODUCT USED FOR UNKNOWN INDICATION
     Dosage: 12.5 MILLIGRAM (8/12.5 MG)
     Route: 065
  6. METHOTREXATE. [Suspect]
     Active Substance: METHOTREXATE
     Dosage: 10 MILLIGRAM 14 DAY
     Route: 065
     Dates: start: 20160825
  7. ROACTEMRA [Suspect]
     Active Substance: TOCILIZUMAB
     Indication: RHEUMATOID ARTHRITIS
     Dosage: UNK
     Route: 065
  8. ROACTEMRA [Suspect]
     Active Substance: TOCILIZUMAB
     Dosage: 162 MILLIGRAM, EVERY WEEK
     Route: 058
     Dates: start: 20140501
  9. CANDECOR [Concomitant]
     Active Substance: CANDESARTAN CILEXETIL
     Dosage: 20.5 MILLIGRAM
     Route: 065
  10. ROACTEMRA [Suspect]
     Active Substance: TOCILIZUMAB
     Dosage: 162 MILLIGRAM, EVERY WEEK
     Route: 058
     Dates: start: 20180928
  11. LEVOTHYROXINE. [Concomitant]
     Active Substance: LEVOTHYROXINE
     Indication: THYROID DISORDER
     Dosage: 50 MICROGRAM, ONCE A DAY
     Route: 065
  12. VALSARTAN. [Concomitant]
     Active Substance: VALSARTAN
     Indication: HYPERTENSION
     Dosage: UNK
     Route: 065
  13. HYDROCHLOROTHIAZIDE. [Suspect]
     Active Substance: HYDROCHLOROTHIAZIDE
     Indication: PRODUCT USED FOR UNKNOWN INDICATION
     Dosage: 25 MILLIGRAM
     Route: 065
  14. IBUPROFEN. [Concomitant]
     Active Substance: IBUPROFEN
     Indication: PRODUCT USED FOR UNKNOWN INDICATION
     Dosage: UNK
     Route: 065
  15. METHOTREXATE. [Suspect]
     Active Substance: METHOTREXATE
     Indication: RHEUMATOID ARTHRITIS
     Dosage: 10 MILLIGRAM, EVERY WEEK
     Route: 065

REACTIONS (11)
  - Back pain [Not Recovered/Not Resolved]
  - Drug ineffective [Unknown]
  - Joint swelling [Recovering/Resolving]
  - Arthralgia [Not Recovered/Not Resolved]
  - Infection susceptibility increased [Unknown]
  - Injection site haematoma [Not Recovered/Not Resolved]
  - Dizziness [Not Recovered/Not Resolved]
  - Pain [Not Recovered/Not Resolved]
  - Nasal dryness [Recovering/Resolving]
  - Dry mouth [Recovering/Resolving]
  - Mucosal dryness [Recovering/Resolving]

NARRATIVE: CASE EVENT DATE: 20140501
